FAERS Safety Report 10389689 (Version 1)
Quarter: 2014Q1

REPORT INFORMATION
  Report Type: Spontaneous
  Country: US (occurrence: None)
  Receive Date: 20140306
  Receipt Date: 20140306
  Transmission Date: 20141002
  Serious: Yes (Other)
  Sender: FDA-Public Use
  Company Number: 163-21880-13091261

PATIENT
  Age: 82 Year
  Sex: Male
  Weight: 83.3 kg

DRUGS (55)
  1. REVLIMID (LENALIDOMIDE) (CAPSULES) [Suspect]
     Indication: PLASMA CELL MYELOMA
     Route: 048
     Dates: start: 20120510
  2. DEXAMETHASONE [Suspect]
     Indication: PLASMA CELL MYELOMA
     Route: 042
     Dates: start: 20120510
  3. ATORVASTATIN [Concomitant]
  4. BUFFERED ASPIRIN (ACETYLSALICYLIC ACID) [Concomitant]
  5. BUMETANIDE [Concomitant]
  6. CYANOCOBALAMIN [Concomitant]
  7. DICYCLOMINE (DICYCLOVERINE HYDROCHLORIDE) [Concomitant]
  8. FLUTICASONE [Concomitant]
  9. GABAPENTIN [Concomitant]
  10. GLYCERIN (GLYCEROL) [Concomitant]
  11. LEVOTHYROXINE [Concomitant]
  12. EMLA [Concomitant]
  13. LORAZEPAM [Concomitant]
  14. MAGNESIUM [Concomitant]
  15. MAGNESIUM OXIDE [Concomitant]
  16. MECLIZINE [Concomitant]
  17. METHADONE [Concomitant]
  18. METOCLOPRAMIDE [Concomitant]
  19. METOPROLOL [Concomitant]
  20. NITROGLYCERIN (GLYCERYL TRINITRATE) [Concomitant]
  21. ONDANSETRON [Concomitant]
  22. POLYETHYLENE GLYCOL (MACROGOL) [Concomitant]
  23. POTASSIUM CHLORIDE [Concomitant]
  24. SENNA [Concomitant]
  25. NOVOLOG (INSULIN ASPART) [Concomitant]
  26. OMEPRAZOLE [Concomitant]
  27. DARBEPOETIN ALFA [Concomitant]
  28. OXYGEN [Concomitant]
  29. KEFLEX (CEFALEXIN MONOHYDRATE) [Concomitant]
  30. CEPHADROXIL (CEFADROXIL) [Concomitant]
  31. LANTUS (INSULIN GLARGINE) [Concomitant]
  32. AZITHROMYCIN [Concomitant]
  33. NYSTATIN [Concomitant]
  34. DIFLUCAN (FLUCONAZOLE) [Concomitant]
  35. LEVAQUIN (LEVOFLOXACIN) [Concomitant]
  36. SODIUM PHOSPHATE [Concomitant]
  37. LIQUID NITROGEN (NITROGEN, LIQUID) [Concomitant]
  38. LIDODERM (LIDOCAINE) [Concomitant]
  39. ACETYLCYCYSTEINE [Concomitant]
  40. ALPHA LIPOIC ACID (THIOCTIC ACID) [Concomitant]
  41. ASCORBIC ACID [Concomitant]
  42. CALCIUM CARBONATE [Concomitant]
  43. OXYCODONE [Concomitant]
  44. ZOLPIDEM [Concomitant]
  45. ZOLEDRONIC ACID [Concomitant]
  46. GLIMEPIRIDE [Concomitant]
  47. NORMAL SALINE (SODIUM CHLORIDE) [Concomitant]
  48. KENALOG (TRIAMCINOLONE ACETONIDE) [Concomitant]
  49. MVI [Concomitant]
  50. COENZYME (UBIDECARENONE) [Concomitant]
  51. CHOLECALCIFEROL, VITAMIN D3 (COLECALCIFEROL) [Concomitant]
  52. OMEGA 3 - FATTY ACIDS-FISH OIL (FISH OIL) [Concomitant]
  53. MELANTONIN [Concomitant]
  54. LORTAB (VICODIN) [Concomitant]
  55. LIDOCAINE-DIPHENHYDRAMINE-ANTACID (BAX) (ANTACIDS, OTHER COMBINATIONS) [Concomitant]

REACTIONS (1)
  - Squamous cell carcinoma of skin [None]
